FAERS Safety Report 9788429 (Version 2)
Quarter: 2014Q1

REPORT INFORMATION
  Report Type: Spontaneous
  Country: US (occurrence: US)
  Receive Date: 20131230
  Receipt Date: 20140129
  Transmission Date: 20141002
  Serious: Yes (Other)
  Sender: FDA-Public Use
  Company Number: US-PFIZER INC-2013370342

PATIENT
  Sex: Female

DRUGS (2)
  1. SKELAXIN [Suspect]
     Dosage: UNK
  2. METAXALONE [Suspect]
     Dosage: UNK

REACTIONS (5)
  - Multiple fractures [Unknown]
  - Hypoacusis [Unknown]
  - Skin discolouration [Unknown]
  - Fall [Unknown]
  - Muscular weakness [Unknown]
